FAERS Safety Report 17290675 (Version 2)
Quarter: 2020Q3

REPORT INFORMATION
  Report Type: Report from Study
  Country: JP (occurrence: JP)
  Receive Date: 20200121
  Receipt Date: 20200818
  Transmission Date: 20201102
  Serious: Yes (Other)
  Sender: FDA-Public Use
  Company Number: JP-SA-2020SA011373

PATIENT

DRUGS (35)
  1. AFLIBERCEPT [Suspect]
     Active Substance: AFLIBERCEPT
     Dosage: 4 MG/KG, QOW
     Route: 041
     Dates: start: 20190910, end: 20190924
  2. FLUOROURACIL. [Suspect]
     Active Substance: FLUOROURACIL
     Indication: COLON CANCER
     Dosage: 250 MG/M2, QOW
     Route: 040
     Dates: start: 20190514, end: 20190528
  3. IRINOTECAN [Suspect]
     Active Substance: IRINOTECAN
     Dosage: 150 MG/M2, QOW
     Route: 065
     Dates: start: 20190625, end: 20190709
  4. FLUOROURACIL. [Suspect]
     Active Substance: FLUOROURACIL
     Dosage: 250 MG/M2, QOW
     Route: 040
     Dates: start: 20180911, end: 20181009
  5. IRINOTECAN [Suspect]
     Active Substance: IRINOTECAN
     Dosage: 150 MG/M2, QOW
     Route: 065
     Dates: start: 20181106, end: 20181218
  6. AFLIBERCEPT [Suspect]
     Active Substance: AFLIBERCEPT
     Dosage: 4 MG/KG, QOW
     Route: 041
     Dates: start: 20190730, end: 20190813
  7. FLUOROURACIL. [Suspect]
     Active Substance: FLUOROURACIL
     Dosage: 2400 MG/M2, QOW
     Route: 041
     Dates: start: 20190115, end: 20190409
  8. CALCIUM FOLINATE [Suspect]
     Active Substance: LEUCOVORIN CALCIUM
     Dosage: 200 MG/M2, QOW
     Route: 065
     Dates: start: 20181106, end: 20181218
  9. FLUOROURACIL. [Suspect]
     Active Substance: FLUOROURACIL
     Dosage: 250 MG/M2, QOW
     Route: 040
     Dates: start: 20190625, end: 20190709
  10. CALCIUM FOLINATE [Suspect]
     Active Substance: LEUCOVORIN CALCIUM
     Indication: COLON CANCER
     Dosage: 200 MG/M2, QOW
     Route: 065
     Dates: start: 20190514, end: 20190528
  11. CALCIUM FOLINATE [Suspect]
     Active Substance: LEUCOVORIN CALCIUM
     Dosage: 200 MG/M2, QOW
     Route: 065
     Dates: start: 20190115, end: 20190409
  12. AFLIBERCEPT [Suspect]
     Active Substance: AFLIBERCEPT
     Dosage: 4 MG/KG, QOW
     Route: 041
     Dates: start: 20190115, end: 20190409
  13. FLUOROURACIL. [Suspect]
     Active Substance: FLUOROURACIL
     Dosage: 2400 MG/M2, QOW
     Route: 041
     Dates: start: 20190730, end: 20190813
  14. FLUOROURACIL. [Suspect]
     Active Substance: FLUOROURACIL
     Dosage: 250 MG/M2, QOW
     Route: 040
     Dates: start: 20190910, end: 20190924
  15. FLUOROURACIL. [Suspect]
     Active Substance: FLUOROURACIL
     Dosage: 2400 MG/M2, QOW
     Route: 041
     Dates: start: 20180911, end: 20181009
  16. FLUOROURACIL. [Suspect]
     Active Substance: FLUOROURACIL
     Dosage: 2400 MG/M2, QOW
     Route: 041
     Dates: start: 20190910, end: 20190924
  17. AFLIBERCEPT [Suspect]
     Active Substance: AFLIBERCEPT
     Indication: COLON CANCER
     Dosage: 4 MG/KG, QOW
     Route: 041
     Dates: start: 20190514, end: 20190528
  18. AFLIBERCEPT [Suspect]
     Active Substance: AFLIBERCEPT
     Dosage: 4 MG/KG, QOW
     Route: 041
     Dates: start: 20180911, end: 20181009
  19. AFLIBERCEPT [Suspect]
     Active Substance: AFLIBERCEPT
     Dosage: 4 MG/KG, QOW
     Route: 041
     Dates: start: 20190625, end: 20190709
  20. FLUOROURACIL. [Suspect]
     Active Substance: FLUOROURACIL
     Dosage: 2400 MG/M2, QOW
     Route: 041
     Dates: start: 20190514, end: 20190528
  21. FLUOROURACIL. [Suspect]
     Active Substance: FLUOROURACIL
     Dosage: 250 MG/M2, QOW
     Route: 040
     Dates: start: 20181106, end: 20181218
  22. FLUOROURACIL. [Suspect]
     Active Substance: FLUOROURACIL
     Dosage: 2400 MG/M2, QOW
     Route: 041
     Dates: start: 20181106, end: 20181218
  23. FLUOROURACIL. [Suspect]
     Active Substance: FLUOROURACIL
     Dosage: 2400 MG/M2, QOW
     Route: 041
     Dates: start: 20190625, end: 20190709
  24. CALCIUM FOLINATE [Suspect]
     Active Substance: LEUCOVORIN CALCIUM
     Dosage: 200 MG/M2, QOW
     Route: 065
     Dates: start: 20180911, end: 20181009
  25. CALCIUM FOLINATE [Suspect]
     Active Substance: LEUCOVORIN CALCIUM
     Dosage: 200 MG/M2, QOW
     Route: 065
     Dates: start: 20190730, end: 20190813
  26. CALCIUM FOLINATE [Suspect]
     Active Substance: LEUCOVORIN CALCIUM
     Dosage: 200 MG/M2, QOW
     Route: 065
     Dates: start: 20190910, end: 20190924
  27. IRINOTECAN [Suspect]
     Active Substance: IRINOTECAN
     Indication: COLON CANCER
     Dosage: 150 MG/M2, QOW
     Route: 065
     Dates: start: 20190514, end: 20190528
  28. IRINOTECAN [Suspect]
     Active Substance: IRINOTECAN
     Dosage: 150 MG/M2, QOW
     Route: 065
     Dates: start: 20190115, end: 20190409
  29. IRINOTECAN [Suspect]
     Active Substance: IRINOTECAN
     Dosage: 150 MG/M2, QOW
     Route: 065
     Dates: start: 20190910, end: 20190924
  30. AFLIBERCEPT [Suspect]
     Active Substance: AFLIBERCEPT
     Dosage: 4 MG/KG, QOW
     Route: 041
     Dates: start: 20181106, end: 20181218
  31. FLUOROURACIL. [Suspect]
     Active Substance: FLUOROURACIL
     Dosage: 250 MG/M2, QOW
     Route: 040
     Dates: start: 20190115, end: 20190409
  32. FLUOROURACIL. [Suspect]
     Active Substance: FLUOROURACIL
     Dosage: 250 MG/M2, QOW
     Route: 040
     Dates: start: 20190730, end: 20190813
  33. CALCIUM FOLINATE [Suspect]
     Active Substance: LEUCOVORIN CALCIUM
     Dosage: 200 MG/M2, QOW
     Route: 065
     Dates: start: 20190625, end: 20190709
  34. IRINOTECAN [Suspect]
     Active Substance: IRINOTECAN
     Dosage: 150 MG/M2, QOW
     Route: 065
     Dates: start: 20180911, end: 20181009
  35. IRINOTECAN [Suspect]
     Active Substance: IRINOTECAN
     Dosage: 150 MG/M2, QOW
     Route: 065
     Dates: start: 20190730, end: 20190813

REACTIONS (2)
  - Duodenal ulcer [Recovering/Resolving]
  - Ill-defined disorder [Recovering/Resolving]

NARRATIVE: CASE EVENT DATE: 20190611
